FAERS Safety Report 18966217 (Version 13)
Quarter: 2023Q2

REPORT INFORMATION
  Report Type: Spontaneous
  Country: JP (occurrence: JP)
  Receive Date: 20210304
  Receipt Date: 20230502
  Transmission Date: 20230722
  Serious: Yes (Death, Hospitalization, Other)
  Sender: FDA-Public Use
  Company Number: JP-BRISTOL-MYERS SQUIBB COMPANY-BMS-2021-020791

PATIENT
  Age: 66 Year
  Sex: Male
  Weight: 54.2 kg

DRUGS (7)
  1. YERVOY [Suspect]
     Active Substance: IPILIMUMAB
     Indication: Metastatic renal cell carcinoma
     Dosage: 54.4 MILLIGRAM
     Route: 041
     Dates: start: 20191018, end: 20191219
  2. OPDIVO [Suspect]
     Active Substance: NIVOLUMAB
     Indication: Metastatic renal cell carcinoma
     Dosage: 240 MILLIGRAM
     Route: 041
     Dates: start: 20191018, end: 20200402
  3. CALONAL [Concomitant]
     Active Substance: ACETAMINOPHEN
     Indication: Pain
     Dosage: 600 MILLIGRAM, Q6H
     Route: 048
     Dates: start: 20191017
  4. GLYCERIN ADULT [Concomitant]
     Active Substance: GLYCERIN
     Indication: Hemiplegia
     Dosage: UNK
  5. GLYCERIN ADULT [Concomitant]
     Active Substance: GLYCERIN
     Indication: Dysarthria
  6. DEXAMETHASONE SODIUM PHOSPHATE [Concomitant]
     Active Substance: DEXAMETHASONE SODIUM PHOSPHATE
     Indication: Hemiplegia
     Dosage: UNK
  7. DEXAMETHASONE SODIUM PHOSPHATE [Concomitant]
     Active Substance: DEXAMETHASONE SODIUM PHOSPHATE
     Indication: Dysarthria

REACTIONS (3)
  - Escherichia urinary tract infection [Not Recovered/Not Resolved]
  - Tumour associated fever [Recovered/Resolved]
  - Malignant neoplasm progression [Fatal]

NARRATIVE: CASE EVENT DATE: 20191020
